FAERS Safety Report 24685427 (Version 1)
Quarter: 2024Q4

REPORT INFORMATION
  Report Type: Report from Study
  Country: US (occurrence: US)
  Receive Date: 20241202
  Receipt Date: 20241202
  Transmission Date: 20250114
  Serious: Yes (Hospitalization)
  Sender: HRA PHARMA
  Company Number: US-ORG100014127-2024000331

PATIENT
  Age: 74 Year
  Sex: Female

DRUGS (7)
  1. LYSODREN [Suspect]
     Active Substance: MITOTANE
     Indication: Adrenal gland cancer
     Dosage: TWO TABLETS EVERY 8 HOURS
     Route: 048
     Dates: start: 20241114, end: 202411
  2. LYSODREN [Suspect]
     Active Substance: MITOTANE
     Indication: Adrenal gland cancer
     Dosage: ONE TABLET DAILY
     Route: 048
     Dates: start: 202411, end: 20241118
  3. Ondansetron tablet 8mg [Concomitant]
     Indication: Product used for unknown indication
  4. keytruda injection 100mg/4m [Concomitant]
     Indication: Product used for unknown indication
  5. Propranolol 60mg tablet [Concomitant]
     Indication: Product used for unknown indication
  6. simvastatin tablet 20mg [Concomitant]
     Indication: Product used for unknown indication
  7. valsartan tablets 80mg [Concomitant]
     Indication: Product used for unknown indication

REACTIONS (1)
  - Haemorrhoids [Not Recovered/Not Resolved]

NARRATIVE: CASE EVENT DATE: 20241114
